FAERS Safety Report 20298292 (Version 1)
Quarter: 2022Q1

REPORT INFORMATION
  Report Type: Spontaneous
  Country: CN (occurrence: CN)
  Receive Date: 20220105
  Receipt Date: 20220105
  Transmission Date: 20220423
  Serious: Yes (Life-Threatening, Other)
  Sender: FDA-Public Use
  Company Number: CN-BAXTER-2021BAX042516

PATIENT
  Age: 75 Year
  Sex: Male
  Weight: 65 kg

DRUGS (10)
  1. MANNITOL [Suspect]
     Active Substance: MANNITOL
     Indication: Oedema
     Route: 041
     Dates: start: 20211210, end: 20211210
  2. IMMUNE GLOBULIN NOS [Suspect]
     Active Substance: IMMUNE GLOBULIN NOS
     Indication: Injury
     Dosage: DOSE: 1500UNITS
     Route: 030
     Dates: start: 20211210, end: 20211210
  3. OXYGEN [Suspect]
     Active Substance: OXYGEN
     Indication: Loss of consciousness
     Dosage: VIA NASAL CATHETER: 10 L/MIN
     Route: 055
     Dates: start: 20211210
  4. OXYGEN [Suspect]
     Active Substance: OXYGEN
     Indication: Hyperhidrosis
  5. OXYGEN [Suspect]
     Active Substance: OXYGEN
     Indication: Unresponsive to stimuli
  6. CALCIUM CHLORIDE\POTASSIUM CHLORIDE\SODIUM CHLORIDE [Suspect]
     Active Substance: CALCIUM CHLORIDE\POTASSIUM CHLORIDE\SODIUM CHLORIDE
     Indication: Loss of consciousness
     Route: 041
     Dates: start: 20211210
  7. CALCIUM CHLORIDE\POTASSIUM CHLORIDE\SODIUM CHLORIDE [Suspect]
     Active Substance: CALCIUM CHLORIDE\POTASSIUM CHLORIDE\SODIUM CHLORIDE
     Indication: Hyperhidrosis
  8. CALCIUM CHLORIDE\POTASSIUM CHLORIDE\SODIUM CHLORIDE [Suspect]
     Active Substance: CALCIUM CHLORIDE\POTASSIUM CHLORIDE\SODIUM CHLORIDE
     Indication: Unresponsive to stimuli
  9. DEXAMETHASONE SODIUM PHOSPHATE [Suspect]
     Active Substance: DEXAMETHASONE SODIUM PHOSPHATE
     Indication: Pruritus
     Route: 040
     Dates: start: 20211210
  10. DEXAMETHASONE SODIUM PHOSPHATE [Suspect]
     Active Substance: DEXAMETHASONE SODIUM PHOSPHATE
     Indication: Rash

REACTIONS (7)
  - Loss of consciousness [Recovering/Resolving]
  - Unresponsive to stimuli [Recovering/Resolving]
  - Pruritus [Recovering/Resolving]
  - Rash [Recovering/Resolving]
  - Hyperhidrosis [Unknown]
  - Vomiting [Recovering/Resolving]
  - Abdominal discomfort [Unknown]

NARRATIVE: CASE EVENT DATE: 20211210
